FAERS Safety Report 8464929-X (Version None)
Quarter: 2012Q2

REPORT INFORMATION
  Report Type: 
  Country: None (occurrence: None)
  Receive Date: 20120323
  Receipt Date: 20110928
  Transmission Date: 20120825
  Serious: Yes (Other)
  Sender: FDA-Public Use
  Company Number: 163-21880-11093496

PATIENT
  Age: 81 Year
  Sex: Male

DRUGS (6)
  1. REVLIMID [Suspect]
     Indication: MULTIPLE MYELOMA
     Dosage: 5 MG, 1 IN 1 D, PO
     Route: 048
     Dates: start: 20110921, end: 20110927
  2. PRILOSEC [Concomitant]
  3. HYTRIN [Concomitant]
  4. SYNTHROID [Concomitant]
  5. ULTRAM [Concomitant]
  6. CELEXA [Concomitant]

REACTIONS (3)
  - FULL BLOOD COUNT DECREASED [None]
  - ASTHENIA [None]
  - FATIGUE [None]
